FAERS Safety Report 23618858 (Version 2)
Quarter: 2024Q1

REPORT INFORMATION
  Report Type: Spontaneous
  Country: US (occurrence: US)
  Receive Date: 20240311
  Receipt Date: 20240313
  Transmission Date: 20240410
  Serious: No
  Sender: FDA-Public Use
  Company Number: US-PFIZER INC-202400060467

PATIENT
  Age: 78 Year
  Sex: Female
  Weight: 91.63 kg

DRUGS (3)
  1. PAXLOVID [Suspect]
     Active Substance: NIRMATRELVIR\RITONAVIR
     Indication: COVID-19 treatment
     Dosage: 2ND CYCLE
  2. RANOLAZINE [Concomitant]
     Active Substance: RANOLAZINE
     Dosage: STOPPED DURING MY TAKING THE PAXLOVID
  3. ROSUVASTATIN [Concomitant]
     Active Substance: ROSUVASTATIN
     Dosage: TOPPED DURING MY TAKING THE PAXLOVID

REACTIONS (3)
  - Therapeutic product effect incomplete [Unknown]
  - Off label use [Unknown]
  - Product use issue [Unknown]
